FAERS Safety Report 16318726 (Version 1)
Quarter: 2019Q2

REPORT INFORMATION
  Report Type: Spontaneous
  Country: US (occurrence: US)
  Receive Date: 20190516
  Receipt Date: 20190516
  Transmission Date: 20190711
  Serious: Yes (Other)
  Sender: FDA-Public Use
  Company Number: US-FRESENIUS KABI-FK201905331

PATIENT
  Age: 83 Year
  Sex: Female
  Weight: 115 kg

DRUGS (4)
  1. HEPARIN SODIUM INJECTION, USP [Suspect]
     Active Substance: HEPARIN SODIUM
     Indication: ANTICOAGULANT THERAPY
     Dosage: DURING TAVR PROCEDURE
     Route: 042
     Dates: start: 20190416, end: 20190416
  2. HEPARIN SODIUM INJECTION, USP [Suspect]
     Active Substance: HEPARIN SODIUM
     Dosage: DURING TAVR PROCEDURE
     Route: 042
     Dates: start: 20190416, end: 20190416
  3. HEPARIN SODIUM INJECTION, USP [Suspect]
     Active Substance: HEPARIN SODIUM
     Dosage: DURING TAVR PROCEDURE
     Route: 042
     Dates: start: 20190416, end: 20190416
  4. HEPARIN SODIUM INJECTION, USP [Suspect]
     Active Substance: HEPARIN SODIUM
     Dosage: DURING TAVR PROCEDURE
     Route: 042
     Dates: start: 20190416, end: 20190416

REACTIONS (1)
  - Therapeutic product effect decreased [Unknown]

NARRATIVE: CASE EVENT DATE: 20190416
